FAERS Safety Report 4789580-4 (Version None)
Quarter: 2005Q4

REPORT INFORMATION
  Report Type: 
  Country: None (occurrence: None)
  Receive Date: 20051006
  Receipt Date: 20050926
  Transmission Date: 20060501
  Serious: Yes (Disabling)
  Sender: FDA-Public Use
  Company Number: PHRM2005FR02572

PATIENT
  Age: 57 Year
  Sex: Male
  Weight: 68 kg

DRUGS (2)
  1. ZOMETA [Suspect]
     Indication: HYPERCALCAEMIA OF MALIGNANCY
     Dosage: 1 DF, QMO
     Route: 042
     Dates: start: 20040101
  2. AREDIA [Suspect]
     Indication: HYPERCALCAEMIA OF MALIGNANCY
     Dosage: 1 DF, QMO
     Route: 042
     Dates: start: 20030115, end: 20031231

REACTIONS (13)
  - ARTHRALGIA [None]
  - CHEST PAIN [None]
  - CONFUSIONAL STATE [None]
  - FATIGUE [None]
  - IMPAIRED HEALING [None]
  - LACRIMATION INCREASED [None]
  - NAUSEA [None]
  - OSTEONECROSIS [None]
  - PRIMARY SEQUESTRUM [None]
  - PURULENT DISCHARGE [None]
  - SINUS HEADACHE [None]
  - TOOTH EXTRACTION [None]
  - VISUAL DISTURBANCE [None]
